FAERS Safety Report 9804634 (Version 3)
Quarter: 2014Q1

REPORT INFORMATION
  Report Type: Spontaneous
  Country: JP (occurrence: JP)
  Receive Date: 20140108
  Receipt Date: 20140206
  Transmission Date: 20141002
  Serious: Yes (Other)
  Sender: FDA-Public Use
  Company Number: JP-PFIZER INC-2014002747

PATIENT
  Age: 51 Year
  Sex: Female

DRUGS (3)
  1. LIPITOR [Suspect]
     Indication: DYSLIPIDAEMIA
     Dosage: 10 MG, DAILY
     Route: 048
     Dates: start: 2008, end: 20131121
  2. BLOPRESS [Concomitant]
     Dosage: UNK
  3. OMEGA-3-ACID ETHYL ESTER [Concomitant]
     Dosage: UNK

REACTIONS (1)
  - Amylase increased [Recovering/Resolving]
